FAERS Safety Report 9097393 (Version 2)
Quarter: 2013Q1

REPORT INFORMATION
  Report Type: Spontaneous
  Country: US (occurrence: US)
  Receive Date: 20130211
  Receipt Date: 20130213
  Transmission Date: 20140127
  Serious: Yes (Other)
  Sender: FDA-Public Use
  Company Number: US-RB-049297-13

PATIENT
  Age: 82 Year
  Sex: Female

DRUGS (4)
  1. MUCINEX [Suspect]
     Indication: RESPIRATORY TRACT CONGESTION
     Route: 048
     Dates: start: 20130126
  2. MUCINEX FAST-MAX SEVERE CONGESTION AND COLD [Suspect]
  3. MUCINEX FAST-MAX SEVERE CONGESTION AND COLD [Suspect]
  4. MUCINEX FAST-MAX SEVERE CONGESTION AND COLD [Suspect]

REACTIONS (1)
  - Epistaxis [Recovered/Resolved]
